FAERS Safety Report 12944754 (Version 1)
Quarter: 2016Q4

REPORT INFORMATION
  Report Type: Spontaneous
  Country: US (occurrence: US)
  Receive Date: 20161115
  Receipt Date: 20161115
  Transmission Date: 20170207
  Serious: Yes (Other)
  Sender: FDA-Public Use
  Company Number: None

PATIENT
  Age: 56 Year
  Sex: Male
  Weight: 89.1 kg

DRUGS (2)
  1. SUCCINYLCHOLINE [Suspect]
     Active Substance: SUCCINYLCHOLINE
     Indication: SURGERY
     Dosage: ?          OTHER FREQUENCY:ONE DOSE;?
     Route: 040
     Dates: start: 20161115, end: 20161115
  2. SUCCINYLCHOLINE [Suspect]
     Active Substance: SUCCINYLCHOLINE
     Indication: ENDOTRACHEAL INTUBATION
     Dosage: ?          OTHER FREQUENCY:ONE DOSE;?
     Route: 040
     Dates: start: 20161115, end: 20161115

REACTIONS (2)
  - Movement disorder [None]
  - Drug effect decreased [None]

NARRATIVE: CASE EVENT DATE: 20161115
